FAERS Safety Report 20735491 (Version 6)
Quarter: 2023Q2

REPORT INFORMATION
  Report Type: Report from Study
  Country: JP (occurrence: JP)
  Receive Date: 20220421
  Receipt Date: 20230626
  Transmission Date: 20230722
  Serious: Yes (Death, Other)
  Sender: FDA-Public Use
  Company Number: JP-ASTELLAS-2022JP005761

PATIENT
  Age: 81 Year
  Sex: Male
  Weight: 61 kg

DRUGS (3)
  1. ENFORTUMAB VEDOTIN [Suspect]
     Active Substance: ENFORTUMAB VEDOTIN
     Indication: Transitional cell carcinoma
     Dosage: 1.25 MG/KG, ONCE WEEKLY FOR THREE CONSECUTIVE WEEKS, INTERRUPTION FOR THE 4TH WEEK
     Route: 041
     Dates: start: 20220309, end: 20220316
  2. ENSURE [Concomitant]
     Active Substance: AMINO ACIDS\DEXTROSE\ELECTROLYTES NOS\SOYBEAN OIL\VITAMINS
     Indication: Decreased appetite
     Route: 048
     Dates: start: 20220316, end: 20220322
  3. URSODIOL [Concomitant]
     Active Substance: URSODIOL
     Indication: Liver disorder
     Route: 048
     Dates: start: 20220316, end: 20220322

REACTIONS (3)
  - Febrile neutropenia [Fatal]
  - Liver disorder [Not Recovered/Not Resolved]
  - Decreased appetite [Not Recovered/Not Resolved]

NARRATIVE: CASE EVENT DATE: 20220316
